FAERS Safety Report 9189826 (Version 2)
Quarter: 2013Q2

REPORT INFORMATION
  Report Type: Spontaneous
  Country: IT (occurrence: IT)
  Receive Date: 20130326
  Receipt Date: 20130410
  Transmission Date: 20140414
  Serious: Yes (Other)
  Sender: FDA-Public Use
  Company Number: IT-PFIZER INC-2013095421

PATIENT
  Age: 58 Year
  Sex: Male

DRUGS (1)
  1. DEPO-MEDROL [Suspect]
     Dosage: UNK
     Route: 030
     Dates: start: 20130306, end: 20130306

REACTIONS (2)
  - Hypoaesthesia [Unknown]
  - Pain [Unknown]
